FAERS Safety Report 16168004 (Version 1)
Quarter: 2019Q2

REPORT INFORMATION
  Report Type: Spontaneous
  Country: US (occurrence: US)
  Receive Date: 20190408
  Receipt Date: 20190408
  Transmission Date: 20190711
  Serious: No
  Sender: FDA-Public Use
  Company Number: US-GLENMARK PHARMACEUTICALS-2019GMK039717

PATIENT

DRUGS (3)
  1. GABAPENTIN TABLETS [Interacting]
     Active Substance: GABAPENTIN
     Dosage: 900 MG, QD (300 MG IN MORNING AND 600 MG AT NIGHT )
     Route: 065
     Dates: start: 201710
  2. LYRICA [Interacting]
     Active Substance: PREGABALIN
     Indication: NEURALGIA
     Dosage: UNK, BID
     Route: 048
     Dates: start: 20171012, end: 20171027
  3. GABAPENTIN TABLETS [Suspect]
     Active Substance: GABAPENTIN
     Indication: NEURALGIA
     Dosage: 1800 MG, QD (600 MG IN THE MORNING AND 1200 MG AT NIGHT)
     Route: 065
     Dates: start: 2017

REACTIONS (10)
  - Gait disturbance [Unknown]
  - Drug interaction [Unknown]
  - Withdrawal syndrome [Unknown]
  - Intentional product misuse [Unknown]
  - Overdose [Unknown]
  - Disorientation [Unknown]
  - Disorientation [Unknown]
  - Product dose omission [Unknown]
  - Drug intolerance [Unknown]
  - Therapeutic product effect incomplete [Unknown]

NARRATIVE: CASE EVENT DATE: 2017
